FAERS Safety Report 6728648-X (Version None)
Quarter: 2010Q2

REPORT INFORMATION
  Report Type: 
  Country: None (occurrence: None)
  Receive Date: 20100517
  Receipt Date: 20100506
  Transmission Date: 20101027
  Serious: Yes (Hospitalization, Disabling)
  Sender: FDA-Public Use
  Company Number: KR-PFIZER INC-2010056867

PATIENT
  Age: 48 Year
  Sex: Female

DRUGS (17)
  1. VFEND [Suspect]
     Indication: CORNEAL OPACITY
     Dosage: 50 MCG/0.1 ML
     Route: 031
  2. VFEND [Suspect]
     Indication: ANTERIOR CHAMBER INFLAMMATION
  3. VANCOMYCIN [Suspect]
     Indication: CORNEAL OPACITY
     Dosage: 1 MCG/0.1 ML
     Route: 031
  4. VANCOMYCIN [Suspect]
     Indication: INFLAMMATION
  5. AMPHOTERICIN B [Suspect]
     Indication: CORNEAL OPACITY
     Dosage: 10 MCG/0.1 ML
     Route: 031
  6. AMPHOTERICIN B [Suspect]
     Indication: INFLAMMATION
  7. VANCOMYCIN [Concomitant]
     Indication: FUNGAL INFECTION
     Dosage: UNK
     Route: 047
  8. VANCOMYCIN [Concomitant]
     Route: 042
  9. CEFTAZIDIME [Concomitant]
     Indication: FUNGAL INFECTION
     Dosage: UNK
     Route: 047
  10. CEFTAZIDIME [Concomitant]
     Route: 042
  11. AMPHOTERICIN B [Concomitant]
     Indication: FUNGAL INFECTION
     Dosage: UNK
     Route: 047
  12. AMPHOTERICIN B [Concomitant]
     Route: 042
  13. PREDNISOLONE [Concomitant]
     Dosage: UNK
  14. DIAMOX SRC [Concomitant]
     Indication: INTRAOCULAR PRESSURE TEST
     Dosage: 500 MG, UNK
  15. ITRACONAZOLE [Concomitant]
     Dosage: 400 MG, UNK
     Route: 048
  16. VORICONAZOLE [Concomitant]
     Dosage: UNK
  17. MOXIFLOXACIN HYDROCHLORIDE [Concomitant]

REACTIONS (4)
  - CORNEAL OPACITY [None]
  - CORNEAL PERFORATION [None]
  - EYE EXCISION [None]
  - HYPOPYON [None]
